FAERS Safety Report 7912650-6 (Version None)
Quarter: 2011Q4

REPORT INFORMATION
  Report Type: 
  Country: None (occurrence: None)
  Receive Date: 20111114
  Receipt Date: 20111108
  Transmission Date: 20120403
  Serious: Yes (Death, Hospitalization)
  Sender: FDA-Public Use
  Company Number: FR-ROCHE-1010651

PATIENT
  Age: 59 Year
  Sex: Female

DRUGS (4)
  1. MABTHERA [Suspect]
     Route: 042
     Dates: start: 20101214, end: 20110104
  2. CYCLOPHOSPHAMIDE [Concomitant]
     Indication: LYMPHOMA
     Dates: start: 20091207, end: 20100201
  3. FLUDARA [Concomitant]
     Indication: LYMPHOMA
     Dates: start: 20091207, end: 20100201
  4. MABTHERA [Suspect]
     Indication: LYMPHOMA
     Route: 042
     Dates: start: 20091207, end: 20100201

REACTIONS (1)
  - THROMBOTIC MICROANGIOPATHY [None]
